FAERS Safety Report 9830696 (Version 3)
Quarter: 2014Q1

REPORT INFORMATION
  Report Type: Spontaneous
  Country: IE (occurrence: IE)
  Receive Date: 20140120
  Receipt Date: 20140311
  Transmission Date: 20141002
  Serious: Yes (Hospitalization, Other)
  Sender: FDA-Public Use
  Company Number: IE-ABBVIE-14P-229-1189557-00

PATIENT
  Age: 43 Year
  Sex: Male
  Weight: 65 kg

DRUGS (3)
  1. HUMIRA [Suspect]
     Indication: CROHN^S DISEASE
     Route: 058
     Dates: start: 2011, end: 2013
  2. HUMIRA [Suspect]
     Route: 058
     Dates: start: 201401
  3. AZATHIOPRINE [Concomitant]
     Indication: CROHN^S DISEASE
     Route: 048
     Dates: start: 2009, end: 2013

REACTIONS (2)
  - Bursitis [Recovered/Resolved]
  - Joint swelling [Unknown]
